FAERS Safety Report 17628415 (Version 1)
Quarter: 2020Q2

REPORT INFORMATION
  Report Type: Spontaneous
  Country: DK (occurrence: DK)
  Receive Date: 20200406
  Receipt Date: 20200406
  Transmission Date: 20200713
  Serious: Yes (Life-Threatening, Hospitalization, Other)
  Sender: FDA-Public Use
  Company Number: DK-AMGEN-DNKSP2020054055

PATIENT
  Age: 59 Year
  Sex: Male

DRUGS (2)
  1. AMGEVITA [Suspect]
     Active Substance: ADALIMUMAB
     Indication: SKIN DISORDER
     Dosage: 40 MILLIGRAM, QWK
     Route: 058
     Dates: start: 20181213
  2. PINEMOL [Concomitant]
     Indication: ANALGESIC THERAPY
     Dosage: 4000 MILLIGRAM, QD
     Route: 048
     Dates: start: 201407

REACTIONS (2)
  - Deep vein thrombosis [Unknown]
  - Pulmonary embolism [Not Recovered/Not Resolved]

NARRATIVE: CASE EVENT DATE: 20200303
